FAERS Safety Report 9686017 (Version 1)
Quarter: 2013Q4

REPORT INFORMATION
  Report Type: Spontaneous
  Country: US (occurrence: US)
  Receive Date: 20131113
  Receipt Date: 20131113
  Transmission Date: 20140711
  Serious: No
  Sender: FDA-Public Use
  Company Number: US-ALLERGAN-1302558US

PATIENT
  Age: 79 Year
  Sex: Female

DRUGS (1)
  1. COMBIGAN[R] [Suspect]
     Indication: GLAUCOMA
     Dosage: 2 GTT, BID
     Route: 047
     Dates: start: 20130218, end: 20130219

REACTIONS (4)
  - Eye pain [Not Recovered/Not Resolved]
  - Headache [Recovering/Resolving]
  - Eye pruritus [Unknown]
  - Eye pain [Not Recovered/Not Resolved]
